FAERS Safety Report 17131060 (Version 1)
Quarter: 2019Q4

REPORT INFORMATION
  Report Type: Spontaneous
  Country: US (occurrence: US)
  Receive Date: 20191209
  Receipt Date: 20191209
  Transmission Date: 20200122
  Serious: Yes (Hospitalization, Other)
  Sender: FDA-Public Use
  Company Number: US-PFIZER INC-2019524146

PATIENT
  Age: 88 Year
  Sex: Female

DRUGS (1)
  1. XANAX [Suspect]
     Active Substance: ALPRAZOLAM
     Dosage: 2 DF, DAILY (2 PILLS A DAY 0.5MG)

REACTIONS (4)
  - Panic reaction [Unknown]
  - Drug dependence [Unknown]
  - Bronchitis [Unknown]
  - Hangover [Unknown]

NARRATIVE: CASE EVENT DATE: 2018
